FAERS Safety Report 8205880-X (Version None)
Quarter: 2012Q1

REPORT INFORMATION
  Report Type: 
  Country: None (occurrence: None)
  Receive Date: 20120313
  Receipt Date: 20120305
  Transmission Date: 20120608
  Serious: Yes (Other)
  Sender: FDA-Public Use
  Company Number: PHHY2012AU019696

PATIENT
  Age: 50 Year
  Sex: Male

DRUGS (5)
  1. VENLAFAXINE [Suspect]
     Dosage: 300 MG, QD
  2. CIPROFLOXACIN [Interacting]
     Dosage: UNK UKN, UNK
  3. VALPROATE SODIUM [Interacting]
     Dosage: 1000 MG, QD
  4. ZOPICLONE [Interacting]
     Dosage: UNK UKN, UNK
  5. VITAMIN PREPARATION COMPOUND CONTAINING SEROTONIN [Interacting]
     Dosage: UNK UKN, UNK

REACTIONS (3)
  - SEROTONIN SYNDROME [None]
  - DRUG INTERACTION [None]
  - HOMICIDE [None]
